FAERS Safety Report 16500115 (Version 2)
Quarter: 2020Q2

REPORT INFORMATION
  Report Type: Report from Study
  Country: IN (occurrence: IN)
  Receive Date: 20190701
  Receipt Date: 20200602
  Transmission Date: 20200713
  Serious: Yes (Other)
  Sender: FDA-Public Use
  Company Number: PHHY2019IN149295

PATIENT
  Age: 66 Year
  Sex: Female
  Weight: 65 kg

DRUGS (3)
  1. SPEXIB [Suspect]
     Active Substance: CERITINIB
     Dosage: 450 MG, EOD
     Route: 048
  2. SPEXIB [Suspect]
     Active Substance: CERITINIB
     Dosage: 450 MG, QD
     Route: 048
     Dates: start: 201904
  3. SPEXIB [Suspect]
     Active Substance: CERITINIB
     Indication: NON-SMALL CELL LUNG CANCER
     Dosage: 450 MG, QD
     Route: 048
     Dates: start: 20180828, end: 201904

REACTIONS (6)
  - Liver function test abnormal [Unknown]
  - Aspartate aminotransferase increased [Unknown]
  - Alanine aminotransferase increased [Unknown]
  - Malaise [Unknown]
  - Product use issue [Unknown]
  - Blood creatinine increased [Unknown]

NARRATIVE: CASE EVENT DATE: 201903
